FAERS Safety Report 19656768 (Version 2)
Quarter: 2021Q3

REPORT INFORMATION
  Report Type: Report from Study
  Country: AR (occurrence: AR)
  Receive Date: 20210804
  Receipt Date: 20210817
  Transmission Date: 20211014
  Serious: Yes (Hospitalization, Other)
  Sender: FDA-Public Use
  Company Number: NVSC2021AR173280

PATIENT
  Age: 54 Year
  Sex: Female

DRUGS (2)
  1. EXFORGE [Suspect]
     Active Substance: AMLODIPINE BESYLATE\VALSARTAN
     Dosage: UNK
     Route: 048
     Dates: start: 2013
  2. EXFORGE [Suspect]
     Active Substance: AMLODIPINE BESYLATE\VALSARTAN
     Indication: HYPERTENSION
     Dosage: 1 DF, QD (STARTED 8 YEARS AGO)
     Route: 065

REACTIONS (3)
  - COVID-19 pneumonia [Recovered/Resolved]
  - Pneumonia [Recovered/Resolved]
  - Breast cancer [Unknown]

NARRATIVE: CASE EVENT DATE: 20201114
